FAERS Safety Report 18272773 (Version 1)
Quarter: 2020Q3

REPORT INFORMATION
  Report Type: Spontaneous
  Country: US (occurrence: US)
  Receive Date: 20200915
  Receipt Date: 20200915
  Transmission Date: 20201103
  Serious: Yes (Other)
  Sender: FDA-Public Use
  Company Number: None

PATIENT
  Sex: Female

DRUGS (1)
  1. LUPRON DEPOT?PED [Suspect]
     Active Substance: LEUPROLIDE ACETATE
     Dosage: ?          OTHER DOSE:11.25MG;OTHER FREQUENCY:Q3MONTHS ;?
     Dates: start: 20190604

REACTIONS (2)
  - Weight increased [None]
  - Pituitary gonadotropin hyperfunction [None]
